FAERS Safety Report 4306897-8 (Version None)
Quarter: 2004Q1

REPORT INFORMATION
  Report Type: 
  Country: None (occurrence: None)
  Receive Date: 20040227
  Receipt Date: 20040112
  Transmission Date: 20041129
  Serious: Yes (Hospitalization)
  Sender: FDA-Public Use
  Company Number: DE-GLAXOSMITHKLINE-D0042868A

PATIENT
  Sex: Male

DRUGS (2)
  1. LAMICTAL [Suspect]
     Indication: LENNOX-GASTAUT SYNDROME
     Route: 048
  2. PHENYTOIN SODIUM [Concomitant]
     Route: 065

REACTIONS (7)
  - HYPERHIDROSIS [None]
  - HYPERTONIA [None]
  - JOINT RANGE OF MOTION DECREASED [None]
  - KYPHOSCOLIOSIS [None]
  - MUSCLE SPASMS [None]
  - RESTLESSNESS [None]
  - SLEEP DISORDER [None]
